FAERS Safety Report 7752962-2 (Version None)
Quarter: 2011Q3

REPORT INFORMATION
  Report Type: 
  Country: None (occurrence: None)
  Receive Date: 20110915
  Receipt Date: 20110909
  Transmission Date: 20111222
  Serious: Yes (Death, Hospitalization)
  Sender: FDA-Public Use
  Company Number: FR-SANOFI-AVENTIS-2011SA052609

PATIENT
  Age: 78 Year
  Sex: Male
  Weight: 82 kg

DRUGS (6)
  1. TAXOTERE [Suspect]
     Route: 042
     Dates: start: 20110801, end: 20110801
  2. ZOFRAN [Concomitant]
  3. VALSARTAN/HYDROCHLOROTHIAZIDE [Concomitant]
  4. PREDNISOLONE [Concomitant]
     Indication: PREMEDICATION
     Dates: start: 20110731
  5. TAXOTERE [Suspect]
     Route: 042
     Dates: start: 20110801, end: 20110801
  6. LOVENOX [Suspect]

REACTIONS (8)
  - BRAIN COMPRESSION [None]
  - CEREBRAL HAEMORRHAGE [None]
  - VOMITING [None]
  - SPINAL CORD OEDEMA [None]
  - BONE PAIN [None]
  - THROMBOCYTOPENIA [None]
  - DYSAESTHESIA [None]
  - PACHYMENINGITIS [None]
